FAERS Safety Report 9461385 (Version 2)
Quarter: 2013Q3

REPORT INFORMATION
  Report Type: Spontaneous
  Country: DE (occurrence: DE)
  Receive Date: 20130816
  Receipt Date: 20130906
  Transmission Date: 20140515
  Serious: Yes (Death, Hospitalization)
  Sender: FDA-Public Use
  Company Number: DE-JNJFOC-20130806712

PATIENT
  Age: 78 Year
  Sex: Female
  Weight: 50 kg

DRUGS (21)
  1. XARELTO [Suspect]
     Indication: DEEP VEIN THROMBOSIS
     Route: 048
     Dates: start: 20121018, end: 20121028
  2. XARELTO [Suspect]
     Indication: ATRIAL FIBRILLATION
     Route: 048
     Dates: start: 20121018, end: 20121028
  3. XARELTO [Suspect]
     Indication: CEREBROVASCULAR ACCIDENT PROPHYLAXIS
     Route: 048
     Dates: start: 20121018, end: 20121028
  4. ARAVA [Concomitant]
     Indication: PNEUMOCYSTIS JIROVECII PNEUMONIA
     Route: 065
     Dates: end: 20121210
  5. PREDNISOLONE [Concomitant]
     Indication: PNEUMOCYSTIS JIROVECII PNEUMONIA
     Route: 065
  6. NEBILET [Concomitant]
     Route: 065
  7. DIGIMERCK [Concomitant]
     Route: 065
     Dates: end: 20121210
  8. ENABETA COMP [Concomitant]
     Route: 065
  9. TORASEMID [Concomitant]
     Route: 065
  10. CALCIUM AND VIT D [Concomitant]
     Route: 065
  11. PANTOPRAZOLE [Concomitant]
     Route: 065
  12. ZINC OROTATE [Concomitant]
     Route: 065
  13. COLESTYRAMIN [Concomitant]
     Route: 065
     Dates: start: 20121218
  14. DUROGESIC [Concomitant]
     Route: 062
  15. ZOPICLONE [Concomitant]
     Indication: SLEEP DISORDER
     Route: 065
  16. ARCOXIA [Concomitant]
     Indication: PAIN
     Route: 065
  17. PREDNISOLON [Concomitant]
     Indication: PAIN
     Route: 065
  18. MARCUMAR [Concomitant]
     Indication: DEEP VEIN THROMBOSIS
     Dosage: 1/2 TABLET PER WEEK
     Route: 065
  19. MARCUMAR [Concomitant]
     Indication: DEEP VEIN THROMBOSIS
     Route: 065
     Dates: start: 20121120, end: 20121203
  20. MARCUMAR [Concomitant]
     Indication: ATRIAL FIBRILLATION
     Route: 065
     Dates: start: 20121120, end: 20121203
  21. MARCUMAR [Concomitant]
     Indication: ATRIAL FIBRILLATION
     Dosage: 1/2 TABLET PER WEEK
     Route: 065

REACTIONS (3)
  - Death [Fatal]
  - Haemoglobin decreased [Recovering/Resolving]
  - Gastrointestinal haemorrhage [Recovering/Resolving]
